FAERS Safety Report 16219995 (Version 3)
Quarter: 2019Q2

REPORT INFORMATION
  Report Type: Report from Study
  Country: None (occurrence: CA)
  Receive Date: 20190420
  Receipt Date: 20190510
  Transmission Date: 20190711
  Serious: Yes (Disabling, Other)
  Sender: FDA-Public Use
  Company Number: CA-ABBVIE-19K-028-2747574-00

PATIENT
  Age: 47 Year
  Sex: Male
  Weight: 120.76 kg

DRUGS (1)
  1. HUMIRA [Suspect]
     Active Substance: ADALIMUMAB
     Indication: UVEITIS
     Route: 058
     Dates: start: 20180720

REACTIONS (3)
  - Retinal detachment [Recovered/Resolved]
  - Macular hole [Unknown]
  - Cataract [Unknown]

NARRATIVE: CASE EVENT DATE: 20190405
